FAERS Safety Report 8823078 (Version 1)
Quarter: 2012Q4

REPORT INFORMATION
  Report Type: 
  Country: GB (occurrence: GB)
  Receive Date: 20121003
  Receipt Date: 20121003
  Transmission Date: 20130627
  Serious: Yes (Hospitalization)
  Sender: FDA-Public Use
  Company Number: PHHY2012GB083048

PATIENT
  Age: 67 Year
  Sex: Male
  Weight: 86 kg

DRUGS (7)
  1. DOCETAXEL [Suspect]
     Dosage: 146 mg, UNK
     Route: 042
     Dates: start: 20120713, end: 20120824
  2. LISINOPRIL [Suspect]
     Route: 048
     Dates: start: 2009
  3. MIRTAZAPINE [Suspect]
     Route: 048
     Dates: start: 20120611
  4. SIMVASTATIN [Suspect]
     Route: 048
     Dates: start: 2009
  5. PREDNISOLONE [Suspect]
     Route: 048
     Dates: start: 20120713
  6. ZOLADEX [Concomitant]
     Dosage: 10.8 mg, UNK
     Route: 042
     Dates: start: 20120515, end: 20120611
  7. ZOLEDRONIC ACID [Concomitant]
     Dosage: 4 mg, UNK
     Route: 048
     Dates: start: 20120713, end: 20120824

REACTIONS (3)
  - Lower respiratory tract infection [Unknown]
  - Pyrexia [Recovered/Resolved]
  - Chills [Recovered/Resolved]
